FAERS Safety Report 12435796 (Version 1)
Quarter: 2016Q2

REPORT INFORMATION
  Report Type: Spontaneous
  Country: US (occurrence: US)
  Receive Date: 20160603
  Receipt Date: 20160603
  Transmission Date: 20160815
  Serious: No
  Sender: FDA-Public Use
  Company Number: US-TEIKOKU PHARMA USA-TPU2016-00343

PATIENT
  Age: 82 Year
  Sex: Male
  Weight: 60.38 kg

DRUGS (4)
  1. LIDOCAINE PATCH [Suspect]
     Active Substance: LIDOCAINE
     Indication: SPINAL COLUMN STENOSIS
     Dosage: APPLY 1 PATCH ON TOP AND 1 PATCH ON THE BOTTOM OF RIGHT FOOT FOR 12 HOURS
     Route: 061
  2. FENTANYL. [Concomitant]
     Active Substance: FENTANYL
     Indication: SPINAL COLUMN STENOSIS
  3. LIDODERM [Suspect]
     Active Substance: LIDOCAINE
     Indication: SPINAL COLUMN STENOSIS
     Dosage: APPLY 1 PATCH ON TOP AND 1 PATCH ON THE BOTTOM OF RIGHT FOOT FOR 12 HOURS
     Route: 061
  4. HYDROCODONE BITARTRATE AND ACETAMINOPHEN [Concomitant]
     Active Substance: ACETAMINOPHEN\HYDROCODONE BITARTRATE
     Indication: SPINAL COLUMN STENOSIS

REACTIONS (3)
  - Drug ineffective for unapproved indication [Unknown]
  - Body height decreased [Unknown]
  - Weight decreased [Unknown]
